FAERS Safety Report 5014656-6 (Version None)
Quarter: 2006Q2

REPORT INFORMATION
  Report Type: 
  Country: None (occurrence: None)
  Receive Date: 20060531
  Receipt Date: 20060523
  Transmission Date: 20061013
  Serious: Yes (Hospitalization)
  Sender: FDA-Public Use
  Company Number: US-MERCK-0605USA04320

PATIENT
  Age: 14 Month

DRUGS (3)
  1. SINGULAIR [Suspect]
     Route: 048
  2. NASALCROM [Concomitant]
     Route: 065
  3. CLARINEX [Concomitant]
     Route: 065

REACTIONS (2)
  - GASTROENTERITIS ROTAVIRUS [None]
  - HEPATIC ENZYME INCREASED [None]
